FAERS Safety Report 6635757-2 (Version None)
Quarter: 2010Q1

REPORT INFORMATION
  Report Type: 
  Country: None (occurrence: None)
  Receive Date: 20100309
  Receipt Date: 20100226
  Transmission Date: 20100710
  Serious: Yes (Hospitalization)
  Sender: FDA-Public Use
  Company Number: 2010JP001240

PATIENT
  Age: 75 Year
  Sex: Male

DRUGS (5)
  1. FUNGUARD (MICAFUNGIN) INJECTION [Suspect]
     Dosage: 50 MG, /D, IV DRIP
     Route: 041
     Dates: start: 20100213, end: 20100215
  2. ZYVOX [Suspect]
     Dosage: 1200 MG,  /D, IV DRIP
     Route: 041
     Dates: start: 20100202, end: 20100214
  3. GLUCOSE (GLUCOSE) INJECTION [Concomitant]
  4. NEOAMIYU (ALANINE, AMINOACETIC ACID, ARGININE,  ASPARTIC ACID, GLUTAMI [Concomitant]
  5. LASIX (FUROSEMIDE SODIUM) INJECTION [Concomitant]

REACTIONS (1)
  - BONE MARROW FAILURE [None]
